FAERS Safety Report 9748897 (Version 2)
Quarter: 2013Q4

REPORT INFORMATION
  Report Type: Spontaneous
  Country: US (occurrence: US)
  Receive Date: 20131212
  Receipt Date: 20131212
  Transmission Date: 20140711
  Serious: Yes (Other)
  Sender: FDA-Public Use
  Company Number: US-INCYTE CORPORATION-2013IN001438

PATIENT
  Age: 80 Year
  Sex: Female
  Weight: 72.56 kg

DRUGS (5)
  1. JAKAFI [Suspect]
     Indication: MYELOFIBROSIS
     Dosage: 5 MG, BID
     Route: 048
     Dates: start: 20130507, end: 20130628
  2. JANUVIA [Concomitant]
  3. METFORMIN [Concomitant]
  4. FOSINOPRIL [Concomitant]
  5. AMLODIPINE [Concomitant]

REACTIONS (4)
  - Thrombocytopenia [Unknown]
  - Rash [Unknown]
  - Contusion [Recovering/Resolving]
  - Anaemia [Unknown]
